FAERS Safety Report 21328499 (Version 3)
Quarter: 2022Q4

REPORT INFORMATION
  Report Type: Report from Study
  Country: US (occurrence: US)
  Receive Date: 20220913
  Receipt Date: 20221104
  Transmission Date: 20230113
  Serious: No
  Sender: FDA-Public Use
  Company Number: US-BIOVITRUM-2022US10575

PATIENT
  Sex: Female

DRUGS (6)
  1. KINERET [Suspect]
     Active Substance: ANAKINRA
     Indication: Rheumatoid arthritis
     Dates: start: 20220909
  2. LEVETIRACETAM [Concomitant]
     Active Substance: LEVETIRACETAM
  3. DULOXETINE [Concomitant]
     Active Substance: DULOXETINE
  4. PREDNISONE [Concomitant]
     Active Substance: PREDNISONE
  5. TIZANIDINE [Concomitant]
     Active Substance: TIZANIDINE
  6. TRAMADOL [Concomitant]
     Active Substance: TRAMADOL

REACTIONS (5)
  - Injection site pain [Unknown]
  - Swelling [Unknown]
  - Fibromyalgia [Unknown]
  - Peripheral swelling [Unknown]
  - Drug ineffective [Unknown]
